FAERS Safety Report 4307300-4 (Version None)
Quarter: 2004Q1

REPORT INFORMATION
  Report Type: 
  Country: None (occurrence: None)
  Receive Date: 20040226
  Receipt Date: 20040220
  Transmission Date: 20041129
  Serious: Yes (Hospitalization)
  Sender: FDA-Public Use
  Company Number: 2004200371US

PATIENT
  Sex: Male

DRUGS (1)
  1. BEXTRA [Suspect]
     Dosage: ORAL
     Route: 048

REACTIONS (3)
  - DISORIENTATION [None]
  - STEVENS-JOHNSON SYNDROME [None]
  - URTICARIA [None]
